FAERS Safety Report 6822169-1 (Version None)
Quarter: 2010Q3

REPORT INFORMATION
  Report Type: 
  Country: None (occurrence: None)
  Receive Date: 20100707
  Receipt Date: 20100707
  Transmission Date: 20110219
  Serious: No
  Sender: FDA-Public Use
  Company Number: None

PATIENT
  Age: 62 Year
  Sex: Male
  Weight: 66.6788 kg

DRUGS (2)
  1. BOTOX [Suspect]
     Indication: DYSTONIA
     Dosage: 235 UNITS
     Dates: start: 20100518, end: 20100518
  2. BOTOX [Suspect]
     Indication: TORTICOLLIS
     Dosage: 235 UNITS
     Dates: start: 20100518, end: 20100518

REACTIONS (6)
  - CONSTIPATION [None]
  - DYSPHAGIA [None]
  - FEEDING DISORDER [None]
  - MUSCULOSKELETAL PAIN [None]
  - MYALGIA [None]
  - POSTURE ABNORMAL [None]
